FAERS Safety Report 19834412 (Version 1)
Quarter: 2021Q3

REPORT INFORMATION
  Report Type: Spontaneous
  Country: US (occurrence: US)
  Receive Date: 20210915
  Receipt Date: 20210915
  Transmission Date: 20211014
  Serious: Yes (Other)
  Sender: FDA-Public Use
  Company Number: US-ELI_LILLY_AND_COMPANY-US202109002707

PATIENT
  Sex: Female

DRUGS (1)
  1. TRULICITY [Suspect]
     Active Substance: DULAGLUTIDE
     Indication: BLOOD GLUCOSE DECREASED
     Dosage: UNK UNK, UNKNOWN
     Route: 065
     Dates: start: 20210820

REACTIONS (2)
  - Dementia [Unknown]
  - Neoplasm malignant [Unknown]
